FAERS Safety Report 11173189 (Version 3)
Quarter: 2015Q3

REPORT INFORMATION
  Report Type: Spontaneous
  Country: US (occurrence: US)
  Receive Date: 20150608
  Receipt Date: 20150731
  Transmission Date: 20151125
  Serious: No
  Sender: FDA-Public Use
  Company Number: US-PFIZER INC-2015188067

PATIENT
  Age: 60 Year
  Sex: Male
  Weight: 126.98 kg

DRUGS (3)
  1. CIALIS [Interacting]
     Active Substance: TADALAFIL
  2. LEVITRA [Interacting]
     Active Substance: VARDENAFIL HYDROCHLORIDE TRIHYDRATE
  3. VIAGRA [Suspect]
     Active Substance: SILDENAFIL CITRATE
     Indication: ERECTILE DYSFUNCTION
     Dosage: 100 MG, AS NEEDED

REACTIONS (3)
  - Drug ineffective [Unknown]
  - Potentiating drug interaction [Unknown]
  - Drug administration error [Unknown]
